FAERS Safety Report 5878536-6 (Version None)
Quarter: 2008Q3

REPORT INFORMATION
  Report Type: 
  Country: None (occurrence: None)
  Receive Date: 20080909
  Receipt Date: 20080829
  Transmission Date: 20090109
  Serious: Yes (Hospitalization)
  Sender: FDA-Public Use
  Company Number: 2008AL010242

PATIENT
  Age: 65 Year
  Sex: Female

DRUGS (9)
  1. HYDROCHLOROTHIAZIDE [Suspect]
     Indication: HYPERTENSION
     Dosage: 25 MG; PO
     Route: 048
     Dates: end: 20080722
  2. LOSARTAN [Concomitant]
  3. LANSOPRAZOLE [Concomitant]
  4. ACETYLSALICYLIC ACID SRT [Concomitant]
  5. SIMVASTATIN [Concomitant]
  6. FERROUS SULFATE TAB [Concomitant]
  7. IBUPROFEN [Concomitant]
  8. AMLODIPINE [Concomitant]
  9. ACETAMINOPHEN W/ CODEINE [Concomitant]

REACTIONS (2)
  - ANAPHYLACTOID REACTION [None]
  - ANGIOEDEMA [None]
